FAERS Safety Report 17249489 (Version 1)
Quarter: 2020Q1

REPORT INFORMATION
  Report Type: Other
  Country: US (occurrence: US)
  Receive Date: 20200108
  Receipt Date: 20200108
  Transmission Date: 20200409
  Serious: Yes (Hospitalization, Other)
  Sender: FDA-Public Use
  Company Number: US-GUTHY-RENKER, LLC-2078684

PATIENT
  Age: 46 Year
  Sex: Female

DRUGS (1)
  1. MEANINGFUL BEAUTY DARK SPOT CORRECTING TREATMENT [Suspect]
     Active Substance: HYDROQUINONE
     Indication: THERAPEUTIC SKIN CARE TOPICAL
     Dates: start: 20191230, end: 20191230

REACTIONS (2)
  - Erythema [None]
  - Swelling face [Recovered/Resolved]
